FAERS Safety Report 25487219 (Version 2)
Quarter: 2025Q3

REPORT INFORMATION
  Report Type: Spontaneous
  Country: US (occurrence: US)
  Receive Date: 20250627
  Receipt Date: 20250922
  Transmission Date: 20251021
  Serious: No
  Sender: LUPIN
  Company Number: US-LUPIN PHARMACEUTICALS INC.-2025-04943

PATIENT
  Age: 81 Year

DRUGS (2)
  1. ALBUTEROL SULFATE [Suspect]
     Active Substance: ALBUTEROL SULFATE
     Indication: Asthma
  2. ALBUTEROL SULFATE [Suspect]
     Active Substance: ALBUTEROL SULFATE
     Indication: Diffuse idiopathic pulmonary neuroendocrine cell hyperplasia

REACTIONS (7)
  - Off label use [Unknown]
  - Drug dose omission by device [Unknown]
  - Device deposit issue [Unknown]
  - Device malfunction [Unknown]
  - Expired product administered [Unknown]
  - Device issue [Unknown]
  - Device delivery system issue [Unknown]
